FAERS Safety Report 11216362 (Version 1)
Quarter: 2015Q2

REPORT INFORMATION
  Report Type: Spontaneous
  Country: US (occurrence: US)
  Receive Date: 20150624
  Receipt Date: 20150624
  Transmission Date: 20150821
  Serious: Yes (Other)
  Sender: FDA-Public Use
  Company Number: US-TEVA-571288USA

PATIENT
  Sex: Female

DRUGS (9)
  1. COPAXONE [Concomitant]
     Active Substance: GLATIRAMER ACETATE
  2. BYSTOLIC [Concomitant]
     Active Substance: NEBIVOLOL HYDROCHLORIDE
  3. EFFIENT [Concomitant]
     Active Substance: PRASUGREL HYDROCHLORIDE
  4. NUVIGIL [Suspect]
     Active Substance: ARMODAFINIL
     Indication: ASTHENIA
     Route: 048
     Dates: start: 201505
  5. LIPITOR [Concomitant]
     Active Substance: ATORVASTATIN CALCIUM
  6. ASPIRIN. [Concomitant]
     Active Substance: ASPIRIN
  7. DEXILANT [Concomitant]
     Active Substance: DEXLANSOPRAZOLE
  8. CARAFATE [Concomitant]
     Active Substance: SUCRALFATE
  9. PERCOCET [Concomitant]
     Active Substance: ACETAMINOPHEN\OXYCODONE HYDROCHLORIDE

REACTIONS (6)
  - Oesophageal compression [Not Recovered/Not Resolved]
  - Oesophageal spasm [Not Recovered/Not Resolved]
  - Oesophageal pain [Not Recovered/Not Resolved]
  - Musculoskeletal pain [Not Recovered/Not Resolved]
  - Dyspnoea [Recovered/Resolved]
  - Oesophageal dilatation [Not Recovered/Not Resolved]
